FAERS Safety Report 4365995-3 (Version None)
Quarter: 2004Q2

REPORT INFORMATION
  Report Type: 
  Country: None (occurrence: None)
  Receive Date: 20040520
  Receipt Date: 20040507
  Transmission Date: 20050107
  Serious: Yes (Hospitalization)
  Sender: FDA-Public Use
  Company Number: 2004211526JP

PATIENT
  Age: 60 Year
  Sex: Male
  Weight: 49.5 kg

DRUGS (3)
  1. MEDROL [Suspect]
     Indication: KIDNEY TRANSPLANT REJECTION
     Dates: end: 20010701
  2. MIZORIBINE (MIZORIBINE) [Suspect]
     Dates: end: 20000601
  3. CYCLOSPORINE [Suspect]
     Dates: end: 20001101

REACTIONS (7)
  - CLEAR CELL CARCINOMA OF THE KIDNEY [None]
  - HAEMATURIA [None]
  - HAEMODIALYSIS [None]
  - RENAL ATROPHY [None]
  - RENAL CYST [None]
  - RENAL TRANSPLANT [None]
  - TRANSPLANT FAILURE [None]
